FAERS Safety Report 4741903-8 (Version None)
Quarter: 2005Q3

REPORT INFORMATION
  Report Type: 
  Country: None (occurrence: None)
  Receive Date: 20050801
  Receipt Date: 20050620
  Transmission Date: 20060218
  Serious: No
  Sender: FDA-Public Use
  Company Number: 2005PV000075

PATIENT
  Age: 60 Year
  Sex: Female
  Weight: 92.5338 kg

DRUGS (5)
  1. BYETTA [Suspect]
     Indication: DIABETES MELLITUS NON-INSULIN-DEPENDENT
     Dosage: 5 UG;BID;SC
     Route: 058
     Dates: start: 20050618, end: 20050618
  2. GLIPIZIDE [Concomitant]
  3. AVANDIA [Concomitant]
  4. ACIPHEX [Concomitant]
  5. LIPITOR [Concomitant]

REACTIONS (1)
  - NAUSEA [None]
